FAERS Safety Report 11512613 (Version 1)
Quarter: 2015Q3

REPORT INFORMATION
  Report Type: Spontaneous
  Country: US (occurrence: None)
  Receive Date: 20150915
  Receipt Date: 20150915
  Transmission Date: 20151125
  Serious: No
  Sender: FDA-Public Use
  Company Number: None

PATIENT
  Age: 65 Year
  Sex: Male

DRUGS (13)
  1. CAPECITABINE 500 MG TEVA [Suspect]
     Active Substance: CAPECITABINE
     Indication: PANCREATIC CARCINOMA
     Route: 048
  2. ENOXAPRARIN [Concomitant]
  3. OXYCODONE [Concomitant]
     Active Substance: OXYCODONE
  4. TEMOZOLOMIDE 250MG TEVA [Suspect]
     Active Substance: TEMOZOLOMIDE
     Indication: PANCREATIC CARCINOMA
     Dosage: 1
     Route: 048
  5. ONDANSETRON [Concomitant]
     Active Substance: ONDANSETRON
  6. CITALOPRAM [Concomitant]
     Active Substance: CITALOPRAM HYDROBROMIDE
  7. LORAZEPAM. [Concomitant]
     Active Substance: LORAZEPAM
  8. ASPIRIN. [Concomitant]
     Active Substance: ASPIRIN
  9. LOMOTIL [Concomitant]
     Active Substance: ATROPINE SULFATE\DIPHENOXYLATE HYDROCHLORIDE
  10. METFORMIN [Concomitant]
     Active Substance: METFORMIN HYDROCHLORIDE
  11. MIRTAZAPINE. [Concomitant]
     Active Substance: MIRTAZAPINE
  12. NEXIUM [Concomitant]
     Active Substance: ESOMEPRAZOLE MAGNESIUM
  13. CALCIUM [Concomitant]
     Active Substance: CALCIUM

REACTIONS (3)
  - Fatigue [None]
  - Palmar-plantar erythrodysaesthesia syndrome [None]
  - Neuropathy peripheral [None]

NARRATIVE: CASE EVENT DATE: 20150910
